FAERS Safety Report 12722891 (Version 1)
Quarter: 2016Q3

REPORT INFORMATION
  Report Type: Spontaneous
  Country: US (occurrence: US)
  Receive Date: 20160907
  Receipt Date: 20160907
  Transmission Date: 20161109
  Serious: No
  Sender: FDA-Public Use
  Company Number: US-AMGEN-USASP2016115503

PATIENT
  Age: 68 Year
  Sex: Female

DRUGS (1)
  1. ENBREL [Suspect]
     Active Substance: ETANERCEPT
     Indication: RHEUMATOID ARTHRITIS
     Dosage: 50 MG, QWK
     Route: 065
     Dates: start: 2016

REACTIONS (11)
  - Cough [Unknown]
  - Decreased appetite [Unknown]
  - Gastric disorder [Unknown]
  - Pain [Unknown]
  - Injection site discolouration [Unknown]
  - Arthralgia [Unknown]
  - Rhinorrhoea [Unknown]
  - Chest discomfort [Unknown]
  - Injection site pain [Unknown]
  - Hyperhidrosis [Unknown]
  - Injection site swelling [Unknown]

NARRATIVE: CASE EVENT DATE: 2016
